FAERS Safety Report 5957986-3 (Version None)
Quarter: 2008Q4

REPORT INFORMATION
  Report Type: 
  Country: None (occurrence: None)
  Receive Date: 20081117
  Receipt Date: 20081031
  Transmission Date: 20090506
  Serious: Yes (Hospitalization)
  Sender: FDA-Public Use
  Company Number: A-US2008-21827

PATIENT
  Age: 55 Year
  Sex: Female
  Weight: 90.2 kg

DRUGS (19)
  1. ILOPROST(ILOPROST I.PAH (5UG/ML) INHALATION SOL) ILOPROST(ILOPROST) IN [Suspect]
     Indication: PULMONARY ARTERIAL HYPERTENSION
     Dosage: 5 UG, 6-9 X DAY, RESPIRATORY
     Route: 055
     Dates: start: 20080902, end: 20080904
  2. ILOPROST(ILOPROST I.PAH (5UG/ML) INHALATION SOL) ILOPROST(ILOPROST) IN [Suspect]
     Indication: PULMONARY ARTERIAL HYPERTENSION
     Dosage: 5 UG, 6-9 X DAY, RESPIRATORY
     Route: 055
     Dates: start: 20080904, end: 20080906
  3. ILOPROST(ILOPROST I.PAH (5UG/ML) INHALATION SOL) ILOPROST(ILOPROST) IN [Suspect]
     Indication: PULMONARY ARTERIAL HYPERTENSION
     Dosage: 5 UG, 6-9 X DAY, RESPIRATORY
     Route: 055
     Dates: start: 20080910
  4. LISINOPRIL [Concomitant]
  5. OMEPRAZOLE [Concomitant]
  6. AMLODIPINE [Concomitant]
  7. ACETAMINOPHEN W/CODENE(PARACETAMOL, CODEINE) [Concomitant]
  8. WARFARIN SODIUM [Concomitant]
  9. ALBUTEROL SULFATE [Concomitant]
  10. SPIRVA(TIOTROPIUM BROMIDE) [Concomitant]
  11. LENTE INSULIN [Concomitant]
  12. POTASSIUM (POTASSIUM CHLORIDE) [Concomitant]
  13. OXYGEN(OXYGEN) [Concomitant]
  14. REVATIO [Concomitant]
  15. ADVAIR DISKUS 100/50 [Concomitant]
  16. PREDNISONE [Concomitant]
  17. VICODIN [Concomitant]
  18. NORVASC [Concomitant]
  19. FUROSEMIDE [Concomitant]

REACTIONS (10)
  - CARDIAC FAILURE CONGESTIVE [None]
  - CHEST PAIN [None]
  - CHRONIC OBSTRUCTIVE PULMONARY DISEASE [None]
  - CONDITION AGGRAVATED [None]
  - DISEASE PROGRESSION [None]
  - NEPHROLITHIASIS [None]
  - PULMONARY HYPERTENSION [None]
  - RHINORRHOEA [None]
  - TACHYCARDIA [None]
  - URINARY TRACT INFECTION BACTERIAL [None]
